FAERS Safety Report 5382923-2 (Version None)
Quarter: 2007Q3

REPORT INFORMATION
  Report Type: 
  Country: None (occurrence: None)
  Receive Date: 20070705
  Receipt Date: 20070705
  Transmission Date: 20080115
  Serious: No
  Sender: FDA-Public Use
  Company Number: None

PATIENT
  Age: 56 Year
  Sex: Female
  Weight: 61.2356 kg

DRUGS (1)
  1. LEVAQUIN [Suspect]
     Indication: SINUSITIS
     Dosage: 1 TABLET 1X DAILY PO
     Route: 048
     Dates: start: 20070415, end: 20070425

REACTIONS (5)
  - ARTHRALGIA [None]
  - ASTHENIA [None]
  - BALANCE DISORDER [None]
  - MUSCULOSKELETAL STIFFNESS [None]
  - PAIN [None]
